FAERS Safety Report 4542696-X (Version None)
Quarter: 2004Q4

REPORT INFORMATION
  Report Type: 
  Country: None (occurrence: None)
  Receive Date: 20041230
  Receipt Date: 20030605
  Transmission Date: 20050328
  Serious: Yes (Hospitalization, Other)
  Sender: FDA-Public Use
  Company Number: US-MERCK-0306USA00616

PATIENT
  Age: 42 Year
  Sex: Female
  Weight: 56 kg

DRUGS (6)
  1. VIOXX [Suspect]
     Route: 048
     Dates: start: 20000224, end: 20000201
  2. VIOXX [Suspect]
     Route: 048
     Dates: start: 20000201
  3. ULTRAM [Concomitant]
     Route: 065
     Dates: start: 20000801
  4. LIPITOR [Concomitant]
     Route: 048
     Dates: start: 20010901
  5. ASPIRIN [Concomitant]
     Route: 065
     Dates: start: 20010901
  6. NITROGLYCERIN [Concomitant]
     Route: 060
     Dates: start: 20010924

REACTIONS (18)
  - ADVERSE EVENT [None]
  - ANGINA PECTORIS [None]
  - APHASIA [None]
  - BLOOD PRESSURE INCREASED [None]
  - BRONCHITIS ACUTE [None]
  - CHEST PAIN [None]
  - CONVULSION [None]
  - DRUG INEFFECTIVE [None]
  - HEADACHE [None]
  - HYPERCHOLESTEROLAEMIA [None]
  - ISCHAEMIC CARDIOMYOPATHY [None]
  - MYOCARDIAL INFARCTION [None]
  - PARESIS [None]
  - PHARYNGITIS [None]
  - SINUSITIS [None]
  - ULNAR NERVE INJURY [None]
  - UPPER RESPIRATORY TRACT INFECTION [None]
  - VISUAL DISTURBANCE [None]
